FAERS Safety Report 8319685-2 (Version None)
Quarter: 2012Q1

REPORT INFORMATION
  Report Type: 
  Country: None (occurrence: None)
  Receive Date: 20120315
  Receipt Date: 20110223
  Transmission Date: 20120608
  Serious: No
  Sender: FDA-Public Use
  Company Number: PHHY2011US06549

PATIENT
  Age: 51 Year
  Sex: Female

DRUGS (5)
  1. GILENYA [Suspect]
     Indication: MULTIPLE SCLEROSIS
     Dosage: 0.5 MG, QD, ORAL
     Route: 048
     Dates: start: 20110104
  2. AMPYRA [Concomitant]
  3. RESILAR (DEXTROMETHORPHAN HYDROBROMIDE) [Concomitant]
  4. ATIVAN [Concomitant]
  5. LISINOPRIL [Concomitant]

REACTIONS (2)
  - FATIGUE [None]
  - NAUSEA [None]
